FAERS Safety Report 6955404-X (Version None)
Quarter: 2010Q3

REPORT INFORMATION
  Report Type: 
  Country: None (occurrence: None)
  Receive Date: 20100830
  Receipt Date: 20100819
  Transmission Date: 20110219
  Serious: Yes (Death, Life-Threatening, Congenital Anomaly)
  Sender: FDA-Public Use
  Company Number: FR-NOVOPROD-260347

PATIENT
  Sex: Female
  Weight: 2.01 kg

DRUGS (5)
  1. ACTRAPID [Suspect]
     Indication: TYPE 1 DIABETES MELLITUS
     Route: 064
     Dates: start: 20060115
  2. INSULATARD FLEXPEN [Suspect]
     Route: 064
     Dates: start: 20051201
  3. DEPAKENE [Suspect]
     Indication: EPILEPSY
     Dosage: 750 MG, UNK
     Route: 064
     Dates: end: 20050101
  4. LANTUS [Suspect]
     Indication: PRODUCT USED FOR UNKNOWN INDICATION
     Route: 064
     Dates: end: 20051201
  5. HUMALOG [Concomitant]
     Dosage: UNK, UNK
     Route: 064
     Dates: end: 20051201

REACTIONS (4)
  - ATRIAL SEPTAL DEFECT [None]
  - CONGENITAL DIAPHRAGMATIC HERNIA [None]
  - DRUG EXPOSURE DURING PREGNANCY [None]
  - RESPIRATORY TRACT MALFORMATION [None]
